FAERS Safety Report 8387764-X (Version None)
Quarter: 2012Q2

REPORT INFORMATION
  Report Type: 
  Country: None (occurrence: None)
  Receive Date: 20120525
  Receipt Date: 20120521
  Transmission Date: 20120825
  Serious: Yes (Death, Hospitalization, Other)
  Sender: FDA-Public Use
  Company Number: ZA-GLAXOSMITHKLINE-A0978620A

PATIENT
  Age: 65 Year
  Sex: Female
  Weight: 68.5 kg

DRUGS (5)
  1. PHARMAPRESS [Concomitant]
  2. FLUTICASONE PROPIONATE/SALMETEROL [Suspect]
     Indication: CHRONIC OBSTRUCTIVE PULMONARY DISEASE
     Route: 055
     Dates: start: 20120201
  3. INVESTIGATIONAL STUDY DRUG [Concomitant]
     Indication: CHRONIC OBSTRUCTIVE PULMONARY DISEASE
     Dates: start: 20120229, end: 20120406
  4. ALBUTEROL [Concomitant]
     Dates: start: 20120201
  5. LEVOTHYROXINE SODIUM [Concomitant]

REACTIONS (3)
  - LOBAR PNEUMONIA [None]
  - DISSEMINATED INTRAVASCULAR COAGULATION [None]
  - SEPSIS [None]
